FAERS Safety Report 7600095-8 (Version None)
Quarter: 2011Q3

REPORT INFORMATION
  Report Type: 
  Country: None (occurrence: None)
  Receive Date: 20110711
  Receipt Date: 20110629
  Transmission Date: 20111222
  Serious: Yes (Other)
  Sender: FDA-Public Use
  Company Number: US-JNJFOC-20110603092

PATIENT
  Sex: Female
  Weight: 68.95 kg

DRUGS (3)
  1. METHOTREXATE [Concomitant]
     Indication: RHEUMATOID ARTHRITIS
     Route: 048
     Dates: start: 19810101
  2. REMICADE [Suspect]
     Route: 042
     Dates: start: 20110526
  3. REMICADE [Suspect]
     Indication: RHEUMATOID ARTHRITIS
     Route: 042
     Dates: start: 20110316

REACTIONS (7)
  - INFUSION RELATED REACTION [None]
  - BLOOD PRESSURE IMMEASURABLE [None]
  - NAUSEA [None]
  - GALLBLADDER DISORDER [None]
  - FEELING HOT [None]
  - PRESYNCOPE [None]
  - HEADACHE [None]
